FAERS Safety Report 24389685 (Version 2)
Quarter: 2024Q4

REPORT INFORMATION
  Report Type: Spontaneous
  Country: US (occurrence: US)
  Receive Date: 20241003
  Receipt Date: 20241009
  Transmission Date: 20250114
  Serious: Yes (Hospitalization, Disabling, Other)
  Sender: ACCORD
  Company Number: US-Accord-448967

PATIENT
  Age: 74 Year
  Sex: Male

DRUGS (7)
  1. MYCOPHENOLATE MOFETIL [Suspect]
     Active Substance: MYCOPHENOLATE MOFETIL
     Indication: Anti-neutrophil cytoplasmic antibody positive vasculitis
  2. PREDNISONE [Suspect]
     Active Substance: PREDNISONE
     Indication: Anti-neutrophil cytoplasmic antibody positive vasculitis
  3. RITUXIMAB [Suspect]
     Active Substance: RITUXIMAB
     Indication: Anti-neutrophil cytoplasmic antibody positive vasculitis
  4. SULFAMETHOXAZOLE\TRIMETHOPRIM [Concomitant]
     Active Substance: SULFAMETHOXAZOLE\TRIMETHOPRIM
     Indication: Prophylaxis
  5. PREDNISONE [Suspect]
     Active Substance: PREDNISONE
     Indication: Chondrocalcinosis
  6. PREDNISONE [Suspect]
     Active Substance: PREDNISONE
     Indication: Gout
  7. PREDNISONE [Suspect]
     Active Substance: PREDNISONE
     Indication: Gout

REACTIONS (7)
  - Nocardiosis [Recovered/Resolved]
  - Arthritis bacterial [Recovered/Resolved]
  - Off label use [Unknown]
  - Deep vein thrombosis [Recovering/Resolving]
  - Anaemia [Recovered/Resolved]
  - Pulmonary nocardiosis [Recovering/Resolving]
  - Haematoma muscle [Recovering/Resolving]
